FAERS Safety Report 18183656 (Version 1)
Quarter: 2020Q3

REPORT INFORMATION
  Report Type: Spontaneous
  Country: US (occurrence: US)
  Receive Date: 20200822
  Receipt Date: 20200822
  Transmission Date: 20201103
  Serious: No
  Sender: FDA-Public Use
  Company Number: US-ANIPHARMA-2019-US-018292

PATIENT
  Age: 70 Year
  Sex: Female
  Weight: 90.72 kg

DRUGS (27)
  1. DYAZIDE (TRIAM/HM) 37.5?25 [Concomitant]
     Dosage: 1/ DAY PM
     Route: 065
  2. NOVOLOG [Concomitant]
     Active Substance: INSULIN ASPART
     Dosage: SLIDING SCALE
     Route: 065
  3. WOMEN^S 50+ VITAMIN [Concomitant]
     Dosage: 1/DAY AM
     Route: 065
  4. SYMBICORT 160 [Concomitant]
     Dosage: 2 PUFFS BID
     Route: 065
  5. ARIMIDEX [Suspect]
     Active Substance: ANASTROZOLE
     Indication: PRODUCT USED FOR UNKNOWN INDICATION
     Dosage: 1 MG, 1/DAY
     Route: 065
  6. BYDUREON BCISE 2MG/.085ML [Concomitant]
     Dosage: UNK
     Route: 065
     Dates: start: 20190705
  7. FLEXERIL [Concomitant]
     Active Substance: CYCLOBENZAPRINE HYDROCHLORIDE
     Dosage: 1 EVERY 8 HRS PRN
     Route: 065
  8. VITAMIN 03 4000 LU/DAY [Concomitant]
     Dosage: PM
     Route: 065
  9. TART CHERRY EXTRACT 1200 MG [Concomitant]
     Dosage: 1 AM, 1 PM
     Route: 065
  10. LNVOKANA 300 MG [Concomitant]
     Dosage: 1/ DAY AM
     Route: 065
  11. OTC ALLEGRA [Concomitant]
     Dosage: PRN?DAILY DURING ALLERGY SEASON
     Route: 065
  12. NYAMYC POWDER [Concomitant]
     Dosage: PRN
     Route: 065
  13. ALBUTEROL NEBULIZER .083% [Concomitant]
     Dosage: PRN
     Route: 065
  14. TRESIBA (U200) LNJ [Concomitant]
     Dosage: 3 ML ? 36 UNITS
     Route: 065
  15. PULMICORT RESPULES 1 MG (BUDESONIDE 0.5MG) [Concomitant]
     Dosage: PRN
     Route: 065
  16. RESTASIS [Concomitant]
     Active Substance: CYCLOSPORINE
     Dosage: 1 DROP IN EACH EYE, BID, AM + PM
     Route: 065
  17. MELATONIN 5MG [Concomitant]
     Active Substance: MELATONIN
     Dosage: UNK
     Route: 065
  18. FLONASE [Concomitant]
     Active Substance: FLUTICASONE PROPIONATE
     Dosage: SEASONAL PRN
  19. METROGEL 1% [Concomitant]
     Dosage: PRN
     Route: 065
  20. NEXIUM 24HR [Concomitant]
     Active Substance: ESOMEPRAZOLE MAGNESIUM
     Dosage: 1/DAY
     Route: 065
  21. TYLENOL ER 650 RNG [Concomitant]
     Dosage: 2 CAPLETS, 3 TIMES/DAY
     Route: 065
  22. PROAIR HFA AER [Concomitant]
     Dosage: PRN
     Route: 065
  23. SINGULAIR [Concomitant]
     Active Substance: MONTELUKAST SODIUM
     Dosage: 1 DAY/PM
     Route: 065
  24. DOSE ASPIRIN [Concomitant]
     Dosage: 1/DAY PM
     Route: 065
  25. ZOLOFT [Concomitant]
     Active Substance: SERTRALINE HYDROCHLORIDE
     Dosage: 100 MG 1/DAY PM
     Route: 065
  26. ZESTRIL (LISINOPRIL) 20 MG [Concomitant]
     Dosage: 1/DAY PM
     Route: 065
  27. ZETIA [Concomitant]
     Active Substance: EZETIMIBE
     Dosage: 1 DAY/PM
     Route: 065

REACTIONS (1)
  - Trigger finger [Unknown]
